FAERS Safety Report 8496342-3 (Version None)
Quarter: 2012Q3

REPORT INFORMATION
  Report Type: 
  Country: None (occurrence: None)
  Receive Date: 20120709
  Receipt Date: 20120703
  Transmission Date: 20120928
  Serious: No
  Sender: FDA-Public Use
  Company Number: US-PFIZER INC-2012137369

PATIENT
  Sex: Female

DRUGS (10)
  1. CLINDAMYCIN HCL [Suspect]
     Dosage: UNK
  2. CIPROFLOXACIN [Suspect]
     Dosage: UNK
  3. NIACIN [Suspect]
     Dosage: UNK
  4. TOPROL-XL [Suspect]
     Dosage: UNK
  5. METHOTREXATE SODIUM [Suspect]
     Dosage: UNK
  6. LOTREL [Suspect]
     Dosage: UNK
  7. ERYTHROMYCIN [Suspect]
     Dosage: UNK
  8. NORCO [Suspect]
     Dosage: UNK
  9. IODINE [Suspect]
     Dosage: UNK
  10. CODEINE SULFATE [Suspect]
     Dosage: UNK

REACTIONS (1)
  - DRUG HYPERSENSITIVITY [None]
